FAERS Safety Report 24243893 (Version 1)
Quarter: 2024Q3

REPORT INFORMATION
  Report Type: Spontaneous
  Country: CA (occurrence: CA)
  Receive Date: 20240823
  Receipt Date: 20240823
  Transmission Date: 20241017
  Serious: Yes (Other)
  Sender: BAXTER
  Company Number: CA-BAXTER-2024BAX023223

PATIENT
  Age: 63 Year
  Sex: Female
  Weight: 72 kg

DRUGS (1)
  1. DEXTROSE\LIDOCAINE HYDROCHLORIDE [Suspect]
     Active Substance: DEXTROSE\LIDOCAINE HYDROCHLORIDE
     Indication: Pain
     Dosage: 0.75 MG/KG 1 EVERY 1 HOURS (THERAPY DURATION: 1 DAYS) (DOSAGE FORM: SOLUTION INTRAVENOUS)
     Route: 042

REACTIONS (3)
  - Dysgeusia [Recovered/Resolved]
  - Suspected product quality issue [Recovered/Resolved]
  - Toxicity to various agents [Recovered/Resolved]
